FAERS Safety Report 11109586 (Version 1)
Quarter: 2015Q2

REPORT INFORMATION
  Report Type: Spontaneous
  Country: US (occurrence: None)
  Receive Date: 20150512
  Receipt Date: 20150512
  Transmission Date: 20150821
  Serious: Yes (Other)
  Sender: FDA-Public Use
  Company Number: None

PATIENT
  Age: 68 Year
  Sex: Female
  Weight: 75.3 kg

DRUGS (9)
  1. ZYRTEC [Concomitant]
     Active Substance: CETIRIZINE HYDROCHLORIDE
  2. PRAVASTATIN SODIUM. [Concomitant]
     Active Substance: PRAVASTATIN SODIUM
  3. INVOKANA [Suspect]
     Active Substance: CANAGLIFLOZIN
     Indication: DIABETES MELLITUS
     Dosage: 1 DAILY PILL
     Route: 048
     Dates: start: 201501
  4. PROBIOTIC COMPLEX [Concomitant]
  5. CIPROFLOXACAN [Concomitant]
  6. METROPROLOL [Concomitant]
     Active Substance: METOPROLOL
  7. B. COMPLEX (NATURE MADE) [Concomitant]
  8. COENZYME Q10 [Concomitant]
     Active Substance: UBIDECARENONE
  9. ASIPRIN [Concomitant]

REACTIONS (3)
  - Urinary tract infection [None]
  - No therapeutic response [None]
  - Fungal infection [None]

NARRATIVE: CASE EVENT DATE: 201502
